FAERS Safety Report 4504200-1 (Version None)
Quarter: 2004Q4

REPORT INFORMATION
  Report Type: 
  Country: None (occurrence: None)
  Receive Date: 20041116
  Receipt Date: 20041116
  Transmission Date: 20050328
  Serious: Yes (Other)
  Sender: FDA-Public Use
  Company Number: None

PATIENT
  Sex: Male

DRUGS (1)
  1. VIOXX [Suspect]
     Indication: PAIN
     Dosage: 25 MG /D PO
     Route: 048
     Dates: start: 20020101, end: 20040101

REACTIONS (2)
  - HYPOTENSION [None]
  - PALPITATIONS [None]
